FAERS Safety Report 6156116-5 (Version None)
Quarter: 2009Q2

REPORT INFORMATION
  Report Type: 
  Country: None (occurrence: None)
  Receive Date: 20090415
  Receipt Date: 20090407
  Transmission Date: 20091009
  Serious: Yes (Other)
  Sender: FDA-Public Use
  Company Number: FR-ASTRAZENECA-2009CG00656

PATIENT
  Age: 19 Month
  Sex: Female

DRUGS (2)
  1. MOPRAL [Suspect]
     Indication: HYPERCHLORHYDRIA
     Route: 048
     Dates: start: 20080101, end: 20081201
  2. MOPRAL [Suspect]
     Route: 048
     Dates: start: 20090310

REACTIONS (1)
  - PETIT MAL EPILEPSY [None]
